FAERS Safety Report 5781797-5 (Version None)
Quarter: 2008Q2

REPORT INFORMATION
  Report Type: 
  Country: None (occurrence: None)
  Receive Date: 20080623
  Receipt Date: 20071025
  Transmission Date: 20081010
  Serious: No
  Sender: FDA-Public Use
  Company Number: US-ASTRAZENECA-2007UW23987

PATIENT
  Age: 77 Year
  Sex: Male

DRUGS (1)
  1. RHINOCORT [Suspect]
     Indication: SINUS DISORDER
     Route: 045
     Dates: start: 20050101

REACTIONS (3)
  - COUGH [None]
  - INCREASED UPPER AIRWAY SECRETION [None]
  - WHEEZING [None]
